FAERS Safety Report 24271232 (Version 7)
Quarter: 2025Q2

REPORT INFORMATION
  Report Type: Report from Study
  Country: BR (occurrence: BR)
  Receive Date: 20240901
  Receipt Date: 20250519
  Transmission Date: 20250717
  Serious: Yes (Hospitalization, Other)
  Sender: JOHNSON AND JOHNSON
  Company Number: BR-JNJFOC-20240860693

PATIENT
  Age: 46 Year
  Sex: Female

DRUGS (3)
  1. TALVEY [Suspect]
     Active Substance: TALQUETAMAB-TGVS
     Indication: Plasma cell myeloma
     Route: 058
     Dates: start: 20240715
  2. TALVEY [Suspect]
     Active Substance: TALQUETAMAB-TGVS
     Route: 058
     Dates: start: 20240930
  3. POMALIDOMIDE [Suspect]
     Active Substance: POMALIDOMIDE
     Indication: Product used for unknown indication
     Route: 065

REACTIONS (27)
  - Plasma cell myeloma [Unknown]
  - Pyrexia [Unknown]
  - Ageusia [Recovering/Resolving]
  - Anosmia [Not Recovered/Not Resolved]
  - Oedema genital [Recovered/Resolved]
  - Influenza [Recovered/Resolved]
  - Lip swelling [Recovered/Resolved]
  - Oxygen saturation abnormal [Not Recovered/Not Resolved]
  - Saliva discolouration [Not Recovered/Not Resolved]
  - Dry skin [Unknown]
  - Bone pain [Unknown]
  - Back pain [Unknown]
  - Heart rate increased [Unknown]
  - Hypotension [Unknown]
  - Palmar erythema [Unknown]
  - Plicated tongue [Unknown]
  - Nail disorder [Unknown]
  - Mobility decreased [Unknown]
  - Lip dry [Not Recovered/Not Resolved]
  - Rash pruritic [Recovering/Resolving]
  - Anxiety [Unknown]
  - Rash [Unknown]
  - Dry mouth [Unknown]
  - Hyperhidrosis [Not Recovered/Not Resolved]
  - Skin atrophy [Not Recovered/Not Resolved]
  - Vulvovaginal swelling [Recovered/Resolved]
  - Sensitive skin [Not Recovered/Not Resolved]

NARRATIVE: CASE EVENT DATE: 20240801
